FAERS Safety Report 19728875 (Version 1)
Quarter: 2021Q3

REPORT INFORMATION
  Report Type: Spontaneous
  Country: FR (occurrence: FR)
  Receive Date: 20210820
  Receipt Date: 20210820
  Transmission Date: 20211014
  Serious: Yes (Life-Threatening, Hospitalization, Other)
  Sender: FDA-Public Use
  Company Number: FR-MYLANLABS-2021M1052981

PATIENT
  Age: 71 Year
  Sex: Male
  Weight: 60 kg

DRUGS (4)
  1. PIPERACILLIN,TAZOBACTAM MYLAN [Suspect]
     Active Substance: PIPERACILLIN SODIUM\TAZOBACTAM SODIUM
     Indication: DERMO-HYPODERMITIS
     Dosage: 12 GRAM, QD
     Route: 042
     Dates: start: 20210116, end: 20210130
  2. URBANYL [Suspect]
     Active Substance: CLOBAZAM
     Indication: DYSKINESIA
     Dosage: 30 MILLIGRAM, QD
     Route: 048
     Dates: start: 20210129, end: 20210202
  3. BACLOFENE [Suspect]
     Active Substance: BACLOFEN
     Indication: MUSCLE SPASTICITY
     Dosage: 120 MILLIGRAM, QD
     Route: 048
     Dates: end: 20210202
  4. VANCOMYCINE MYLAN                  /00314401/ [Concomitant]
     Active Substance: VANCOMYCIN
     Indication: DERMO-HYPODERMITIS
     Dosage: 1500 MILLIGRAM, QD
     Route: 042
     Dates: start: 20210125, end: 20210201

REACTIONS (2)
  - Altered state of consciousness [Recovering/Resolving]
  - Encephalopathy [Recovering/Resolving]

NARRATIVE: CASE EVENT DATE: 20210125
